FAERS Safety Report 10911848 (Version 2)
Quarter: 2015Q2

REPORT INFORMATION
  Report Type: Spontaneous
  Country: DE (occurrence: DE)
  Receive Date: 20150313
  Receipt Date: 20150421
  Transmission Date: 20150821
  Serious: Yes (Other)
  Sender: FDA-Public Use
  Company Number: DE-AMGEN-DEUSP2014099518

PATIENT
  Age: 53 Year
  Sex: Female

DRUGS (12)
  1. OMEPRAZOL                          /00661201/ [Concomitant]
     Active Substance: OMEPRAZOLE
     Dosage: 20 MG, BID
  2. DEKRISTOL [Concomitant]
     Active Substance: CHOLECALCIFEROL
     Dosage: 20000 IEUNK, UNK
  3. MIMPARA [Suspect]
     Active Substance: CINACALCET HYDROCHLORIDE
     Indication: PRODUCT USED FOR UNKNOWN INDICATION
     Dosage: 90 MG, QD
     Route: 048
     Dates: start: 20100120
  4. RENVELA [Concomitant]
     Active Substance: SEVELAMER CARBONATE
     Dosage: 800 MG, 9 PER DAY
  5. FENISTIL 24-STUNDEN [Concomitant]
  6. PROLIA [Suspect]
     Active Substance: DENOSUMAB
     Indication: PRODUCT USED FOR UNKNOWN INDICATION
     Dosage: 60 MG, UNK
     Route: 065
     Dates: start: 20120301
  7. BRETARIS GENUAIR [Concomitant]
     Dosage: 322 MUG, BID
  8. FOSRENOL [Concomitant]
     Active Substance: LANTHANUM CARBONATE
     Dosage: 1000 MG, TID
  9. IBUPROFEN. [Concomitant]
     Active Substance: IBUPROFEN
     Dosage: NOT WITHOUT STOMACH PROTECTION
  10. NEORECORMON [Concomitant]
     Active Substance: ERYTHROPOIETIN
     Dosage: 3000,00 IE
  11. NOVAMINSULFON-RATIOPHARM [Concomitant]
     Active Substance: METAMIZOLE
     Dosage: 500 MG/ML, AS NEEDED
  12. ZEMPLAR [Concomitant]
     Active Substance: PARICALCITOL

REACTIONS (8)
  - Shunt thrombosis [Unknown]
  - Pneumonia [Unknown]
  - Transposition of the great vessels [Unknown]
  - Intraocular pressure increased [Unknown]
  - Anastomotic stenosis [Unknown]
  - Cystitis [Unknown]
  - Blood parathyroid hormone abnormal [Unknown]
  - Drug ineffective [Unknown]

NARRATIVE: CASE EVENT DATE: 20140326
